FAERS Safety Report 6971933-7 (Version None)
Quarter: 2010Q3

REPORT INFORMATION
  Report Type: 
  Country: None (occurrence: None)
  Receive Date: 20100908
  Receipt Date: 20100908
  Transmission Date: 20110219
  Serious: No
  Sender: FDA-Public Use
  Company Number: None

PATIENT
  Age: 53 Year
  Sex: Female
  Weight: 75.8414 kg

DRUGS (1)
  1. CUBICIN [Suspect]
     Indication: SPINAL CORD INFECTION
     Dosage: 400MG Q24H IVDRIP
     Route: 041
     Dates: start: 20100824, end: 20100825

REACTIONS (2)
  - DYSPNOEA [None]
  - RASH GENERALISED [None]
